FAERS Safety Report 11980998 (Version 1)
Quarter: 2016Q1

REPORT INFORMATION
  Report Type: Spontaneous
  Country: IL (occurrence: IL)
  Receive Date: 20160129
  Receipt Date: 20160129
  Transmission Date: 20160526
  Serious: Yes (Other)
  Sender: FDA-Public Use
  Company Number: PHHY2015IL170778

PATIENT
  Sex: Female

DRUGS (6)
  1. TEGRETOL [Suspect]
     Active Substance: CARBAMAZEPINE
     Dosage: 800 MG, QD
     Route: 048
  2. FRISIUM [Concomitant]
     Active Substance: CLOBAZAM
     Dosage: 15 MG, (5 MG AT THE MORNING AND 10 MG CR AT THE EVENING).
     Route: 048
  3. TEGRETOL [Suspect]
     Active Substance: CARBAMAZEPINE
     Dosage: 1100 MG, UNK
     Route: 048
  4. TEGRETOL [Suspect]
     Active Substance: CARBAMAZEPINE
     Dosage: 1000 MG, QD  (400MG CR AT THE MORNING AND 600 MG CR AT THE EVENING)
     Route: 048
  5. TEGRETOL [Suspect]
     Active Substance: CARBAMAZEPINE
     Indication: EPILEPSY
     Dosage: 500 MG, QD
     Route: 048
  6. FRISIUM [Concomitant]
     Active Substance: CLOBAZAM
     Indication: EPILEPSY
     Dosage: 10 MG, QD
     Route: 048

REACTIONS (6)
  - Insomnia [Unknown]
  - Drug ineffective [Unknown]
  - Generalised non-convulsive epilepsy [Unknown]
  - Muscular weakness [Unknown]
  - Disorientation [Unknown]
  - Petit mal epilepsy [Not Recovered/Not Resolved]
